FAERS Safety Report 5314975-X (Version None)
Quarter: 2007Q2

REPORT INFORMATION
  Report Type: 
  Country: None (occurrence: None)
  Receive Date: 20070502
  Receipt Date: 20070419
  Transmission Date: 20071010
  Serious: Yes (Hospitalization, Other)
  Sender: FDA-Public Use
  Company Number: US-ELI_LILLY_AND_COMPANY-US200703006371

PATIENT
  Age: 68 Year
  Sex: Female
  Weight: 64.852 kg

DRUGS (1)
  1. EVISTA [Suspect]
     Indication: PROPHYLAXIS
     Dosage: 60 MG, UNK
     Route: 048
     Dates: start: 20020101

REACTIONS (4)
  - CLEAR CELL ENDOMETRIAL CARCINOMA [None]
  - ENDOMETRIAL CANCER STAGE II [None]
  - PAPILLOMA [None]
  - POSTMENOPAUSAL HAEMORRHAGE [None]
